FAERS Safety Report 6529617-5 (Version None)
Quarter: 2010Q1

REPORT INFORMATION
  Report Type: 
  Country: None (occurrence: None)
  Receive Date: 20100107
  Receipt Date: 20091228
  Transmission Date: 20100710
  Serious: Yes (Life-Threatening, Hospitalization)
  Sender: FDA-Public Use
  Company Number: JP-PFIZER INC-2009177732

PATIENT
  Age: 62 Year
  Sex: Female
  Weight: 53 kg

DRUGS (10)
  1. SUNITINIB MALATE [Suspect]
     Indication: GASTROINTESTINAL STROMAL TUMOUR
     Dosage: 37.5 MG, 1X/DAY
     Route: 048
     Dates: start: 20080904
  2. ADONA [Concomitant]
     Dosage: UNK
     Route: 048
  3. TRANSAMIN [Concomitant]
     Dosage: UNK
     Route: 048
  4. GASMOTIN [Concomitant]
     Dosage: UNK
     Route: 048
  5. FERROMIA [Concomitant]
     Route: 048
  6. LAFUTIDINE [Concomitant]
     Dosage: UNK
     Route: 048
  7. DIART [Concomitant]
     Dosage: UNK
     Route: 048
  8. ONE-ALPHA [Concomitant]
     Dosage: UNK
     Route: 048
  9. MOBIC [Concomitant]
     Dosage: UNK
     Route: 048
  10. THYRADIN [Concomitant]
     Dosage: UNK
     Route: 048
     Dates: start: 20081105

REACTIONS (6)
  - BLOOD CREATININE INCREASED [None]
  - BLOOD URIC ACID INCREASED [None]
  - DEHYDRATION [None]
  - INFECTION [None]
  - PAIN [None]
  - VESICAL FISTULA [None]
